FAERS Safety Report 5874650-X (Version None)
Quarter: 2008Q3

REPORT INFORMATION
  Report Type: 
  Country: None (occurrence: None)
  Receive Date: 20080909
  Receipt Date: 20080903
  Transmission Date: 20090109
  Serious: Yes (Death)
  Sender: FDA-Public Use
  Company Number: DE-TEVA-176954ISR

PATIENT
  Sex: Male

DRUGS (9)
  1. TORSEMIDE [Suspect]
  2. CITALOPRAM HYDROBROMIDE [Suspect]
  3. DICLOFENAC SODIUM [Suspect]
  4. AMIODARONE HCL [Suspect]
  5. DOXYCYCLINE [Suspect]
  6. RISPERIDONE [Suspect]
  7. SERETIDE [Suspect]
  8. THEOPHYLLINE [Suspect]
  9. LEVOMEPROMAZINE MALEATE [Suspect]

REACTIONS (2)
  - LEFT VENTRICULAR FAILURE [None]
  - SMALL INTESTINAL PERFORATION [None]
